FAERS Safety Report 9154587 (Version 1)
Quarter: 2013Q1

REPORT INFORMATION
  Report Type: Spontaneous
  Country: US (occurrence: None)
  Receive Date: 20130206
  Receipt Date: 20130206
  Transmission Date: 20140127
  Serious: Yes (Other)
  Sender: FDA-Public Use
  Company Number: KAD201301-000091

PATIENT
  Age: 52 Year
  Sex: Male
  Weight: 74.38 kg

DRUGS (5)
  1. RIBASPHERE [Suspect]
     Indication: HEPATITIS C
     Dosage: 400 MG (IN THE MORNING) AND 600 MG (IN THE EVENING), ORAL
     Route: 048
     Dates: start: 20121116, end: 20130104
  2. PEGASYS [Suspect]
     Indication: HEPATITIS C
     Route: 058
     Dates: start: 20121116, end: 20130104
  3. VICTRELIS [Suspect]
     Indication: HEPATITIS C
     Dosage: 200 MG (TAKE 4 CAPSULES EVERY 8 HOURS), ORAL
     Route: 048
     Dates: start: 20121220, end: 20130104
  4. ACTOPLUS [Concomitant]
  5. METFORMIN (METFORMIN) [Concomitant]

REACTIONS (4)
  - Vision blurred [None]
  - Diplopia [None]
  - Dizziness [None]
  - Headache [None]
